FAERS Safety Report 6004261-7 (Version None)
Quarter: 2008Q4

REPORT INFORMATION
  Report Type: 
  Country: None (occurrence: None)
  Receive Date: 20081216
  Receipt Date: 20081210
  Transmission Date: 20090506
  Serious: Yes (Other)
  Sender: FDA-Public Use
  Company Number: DE-NOVOPROD-282208

PATIENT
  Sex: Male
  Weight: 80 kg

DRUGS (1)
  1. NORDITROPIN [Suspect]
     Indication: GROWTH HORMONE DEFICIENCY
     Dosage: .2 MG, QD
     Route: 058
     Dates: start: 20070701, end: 20081202

REACTIONS (1)
  - PITUITARY TUMOUR BENIGN [None]
